FAERS Safety Report 15642124 (Version 2)
Quarter: 2018Q4

REPORT INFORMATION
  Report Type: Spontaneous
  Country: DE (occurrence: DE)
  Receive Date: 20181121
  Receipt Date: 20181122
  Transmission Date: 20190205
  Serious: Yes (Congenital Anomaly)
  Sender: FDA-Public Use
  Company Number: DE-TEVA-2018-DE-976803

PATIENT
  Age: 1 Day
  Sex: Male
  Weight: 2.21 kg

DRUGS (7)
  1. PARACETAMOL [Concomitant]
     Active Substance: ACETAMINOPHEN
     Indication: PAIN
     Dosage: FOUR TABLETS ALTHOGETHER DURING THE ENTIRE PREGNANCY
     Route: 064
  2. GONAL-F [Concomitant]
     Active Substance: FOLLITROPIN
     Indication: ASSISTED FERTILISATION
     Dosage: 300 [I.E./D ]/ 75-300 IE/D
     Route: 064
     Dates: start: 20170727, end: 20170806
  3. URSOFALK [Concomitant]
     Active Substance: URSODIOL
     Indication: CHOLESTASIS OF PREGNANCY
     Route: 064
  4. METFORMIN [Suspect]
     Active Substance: METFORMIN HYDROCHLORIDE
     Indication: POLYCYSTIC OVARIES
     Dosage: 1500 [MG/D ]
     Route: 064
  5. PROGESTERON [Concomitant]
     Active Substance: PROGESTERONE
     Indication: POLYCYSTIC OVARIES
     Dosage: 600 MILLIGRAM DAILY; 600 [MG/D ]
     Route: 064
  6. BREVACTID [Concomitant]
     Active Substance: GONADOTROPHIN, CHORIONIC
     Indication: ASSISTED FERTILISATION
     Route: 064
     Dates: start: 20170806, end: 20170806
  7. RIZINUSOL [Concomitant]
     Indication: LABOUR INDUCTION
     Route: 064
     Dates: start: 20180401, end: 20180401

REACTIONS (1)
  - Renal aplasia [Not Recovered/Not Resolved]

NARRATIVE: CASE EVENT DATE: 20180401
